FAERS Safety Report 7501774-3 (Version None)
Quarter: 2011Q2

REPORT INFORMATION
  Report Type: 
  Country: None (occurrence: None)
  Receive Date: 20110523
  Receipt Date: 20110523
  Transmission Date: 20111010
  Serious: Yes (Hospitalization, Other)
  Sender: FDA-Public Use
  Company Number: None

PATIENT
  Age: 50 Year
  Sex: Male
  Weight: 182.4 kg

DRUGS (7)
  1. NAPROXEN (ALEVE) [Suspect]
     Indication: PAIN
     Dosage: 220MG Q 8H PRN PO CHRONIC
  2. LEVOXYL [Concomitant]
  3. VANCOMYCIN [Suspect]
     Indication: CELLULITIS
     Dosage: RECENT
  4. SINEMET [Concomitant]
  5. PROPRANOLOL [Concomitant]
  6. LISINOPRIL [Suspect]
     Indication: HYPERTENSION
     Dosage: 20MG Q PM PO CHRONIC
     Route: 048
  7. MIRAPEX ER [Concomitant]

REACTIONS (2)
  - INTERNATIONAL NORMALISED RATIO INCREASED [None]
  - RENAL FAILURE ACUTE [None]
